FAERS Safety Report 9504617 (Version 3)
Quarter: 2013Q3

REPORT INFORMATION
  Report Type: Spontaneous
  Country: US (occurrence: US)
  Receive Date: 20130906
  Receipt Date: 20130925
  Transmission Date: 20140515
  Serious: Yes (Other)
  Sender: FDA-Public Use
  Company Number: US-009507513-1309USA002297

PATIENT
  Age: 74 Year
  Sex: Female

DRUGS (5)
  1. MIRALAX [Suspect]
     Indication: CONSTIPATION
     Dosage: UNK, UNKNOWN
     Route: 048
  2. TRIAM TABLETS [Concomitant]
     Indication: HYPERTENSION
     Dosage: UNK
     Route: 048
  3. PROZAC [Concomitant]
     Indication: ANXIETY
     Dosage: UNK
     Route: 048
  4. POTASSIUM (UNSPECIFIED) [Concomitant]
     Indication: BLOOD POTASSIUM DECREASED
     Dosage: UNK
     Route: 048
  5. VITAMIN D (UNSPECIFIED) [Concomitant]
     Indication: PRODUCT USED FOR UNKNOWN INDICATION
     Dosage: UNK
     Route: 048

REACTIONS (3)
  - Surgery [Unknown]
  - Product taste abnormal [Unknown]
  - Product odour abnormal [Unknown]
